FAERS Safety Report 12882564 (Version 1)
Quarter: 2016Q4

REPORT INFORMATION
  Report Type: Spontaneous
  Country: US (occurrence: US)
  Receive Date: 20161025
  Receipt Date: 20161025
  Transmission Date: 20170207
  Serious: No
  Sender: FDA-Public Use
  Company Number: US-PFIZER INC-2016494566

PATIENT
  Age: 62 Year

DRUGS (7)
  1. TEGRETOL [Suspect]
     Active Substance: CARBAMAZEPINE
     Dosage: UNK
  2. CODEINE [Suspect]
     Active Substance: CODEINE
     Dosage: UNK
  3. GABAPENTIN. [Suspect]
     Active Substance: GABAPENTIN
     Dosage: UNK
  4. CRESTOR [Suspect]
     Active Substance: ROSUVASTATIN CALCIUM
     Dosage: UNK
  5. IMITREX [Suspect]
     Active Substance: SUMATRIPTAN SUCCINATE
     Dosage: UNK
  6. PHENERGAN [Suspect]
     Active Substance: PROMETHAZINE HYDROCHLORIDE
     Dosage: UNK
  7. ZOCOR [Suspect]
     Active Substance: SIMVASTATIN
     Dosage: UNK

REACTIONS (1)
  - Drug hypersensitivity [Unknown]
